FAERS Safety Report 10017480 (Version 1)
Quarter: 2014Q1

REPORT INFORMATION
  Report Type: Report from Study
  Country: CA (occurrence: CA)
  Receive Date: 20140318
  Receipt Date: 20140318
  Transmission Date: 20141002
  Serious: Yes (Other)
  Sender: FDA-Public Use
  Company Number: CA-JNJFOC-20140308281

PATIENT
  Age: 60 Year
  Sex: Female
  Weight: 66.2 kg

DRUGS (4)
  1. REMICADE [Suspect]
     Indication: PSORIATIC ARTHROPATHY
     Route: 042
     Dates: start: 20140311
  2. REMICADE [Suspect]
     Indication: PSORIATIC ARTHROPATHY
     Route: 042
     Dates: start: 20111114
  3. METHOTREXATE [Concomitant]
     Route: 065
  4. NITRO SPRAY [Concomitant]
     Route: 065

REACTIONS (7)
  - Electrocardiogram abnormal [Unknown]
  - Heart rate increased [Unknown]
  - Cold sweat [Unknown]
  - Hypertension [Unknown]
  - Dizziness [Unknown]
  - Infusion related reaction [Unknown]
  - Dyspnoea [Unknown]
